FAERS Safety Report 21804109 (Version 1)
Quarter: 2023Q1

REPORT INFORMATION
  Report Type: Report from Study
  Country: US (occurrence: US)
  Receive Date: 20230102
  Receipt Date: 20230102
  Transmission Date: 20230417
  Serious: No
  Sender: FDA-Public Use
  Company Number: US-ABBVIE-4222648

PATIENT
  Sex: Male

DRUGS (11)
  1. DUOPA [Suspect]
     Active Substance: CARBIDOPA\LEVODOPA
     Indication: Product used for unknown indication
     Route: 050
     Dates: start: 20180117
  2. DUOPA [Suspect]
     Active Substance: CARBIDOPA\LEVODOPA
  3. SELEGILINE [Concomitant]
     Active Substance: SELEGILINE
     Indication: Product used for unknown indication
     Dosage: TWICE A DAY?FORM STRENGTH: 1 CAPSULE
     Route: 048
  4. MINERALS\VITAMINS [Concomitant]
     Active Substance: MINERALS\VITAMINS
     Indication: Product used for unknown indication
     Dosage: DAILY?FORM STRENGTH: 1 TABLET
     Route: 048
  5. PAROXETINE [Concomitant]
     Active Substance: PAROXETINE
     Indication: Product used for unknown indication
     Dosage: DAILY?FORM STRENGTH: 1 TABLET
     Route: 048
  6. CARBIDOPA LEVODOPA [Concomitant]
     Active Substance: CARBIDOPA\LEVODOPA
     Indication: Product used for unknown indication
     Dosage: TWICE A DAY?CARBIDOPA-LEVODOPA 25-100MG?FORM STRENGTH: 1 TABLET
     Route: 048
  7. CARBIDOPA LEVODOPA [Concomitant]
     Active Substance: CARBIDOPA\LEVODOPA
     Indication: Product used for unknown indication
     Dosage: QPM?CARBIDOPA-LEVODOPA ER 50-200MG?FORM STRENGTH: 1 TABLET
     Route: 048
  8. MINERALS\VITAMINS [Concomitant]
     Active Substance: MINERALS\VITAMINS
     Indication: Product used for unknown indication
     Dosage: DAILY?FORM STRENGTH: 2 CAPSULES
     Route: 048
  9. RASAGILINE [Concomitant]
     Active Substance: RASAGILINE
     Indication: Product used for unknown indication
     Dosage: DAILY?FORM STRENGTH: 1 MILLIGRAM
     Route: 048
  10. COMTAN [Concomitant]
     Active Substance: ENTACAPONE
     Indication: Product used for unknown indication
     Dosage: THRICE A DAY?FORM STRENGTH: 1 TABLET
     Route: 048
  11. OCUVITE [Concomitant]
     Active Substance: VITAMINS
     Indication: Product used for unknown indication
     Dosage: DAILY?OCUVITE EYE HEALTH?FORM STRENGTH: 1 TABLET
     Route: 048

REACTIONS (2)
  - Condition aggravated [Recovering/Resolving]
  - Device use error [Not Recovered/Not Resolved]
